FAERS Safety Report 6837131-2 (Version None)
Quarter: 2010Q3

REPORT INFORMATION
  Report Type: 
  Country: None (occurrence: None)
  Receive Date: 20100713
  Receipt Date: 20070507
  Transmission Date: 20110219
  Serious: No
  Sender: FDA-Public Use
  Company Number: US-PFIZER INC-2007037954

PATIENT
  Sex: Female
  Weight: 68.04 kg

DRUGS (6)
  1. CHANTIX [Suspect]
     Indication: SMOKING CESSATION THERAPY
     Dates: start: 20070101
  2. EVISTA [Concomitant]
     Indication: OSTEOPOROSIS
  3. FOSAMAX [Concomitant]
     Indication: OSTEOPOROSIS
  4. LAMICTAL [Concomitant]
  5. VITAMINS [Concomitant]
  6. ALL OTHER THERAPEUTIC PRODUCTS [Concomitant]

REACTIONS (4)
  - ABNORMAL DREAMS [None]
  - FEELING HOT [None]
  - NAUSEA [None]
  - SLEEP DISORDER [None]
